FAERS Safety Report 23279949 (Version 1)
Quarter: 2023Q4

REPORT INFORMATION
  Report Type: Report from Study
  Country: DE (occurrence: DE)
  Receive Date: 20231210
  Receipt Date: 20231210
  Transmission Date: 20240110
  Serious: Yes (Other)
  Sender: FDA-Public Use
  Company Number: DE-TAKEDA-2020TUS041535

PATIENT
  Sex: Female

DRUGS (3)
  1. VEDOLIZUMAB [Suspect]
     Active Substance: VEDOLIZUMAB
     Indication: Inflammatory bowel disease
     Dosage: UNK
     Route: 042
     Dates: start: 20190219
  2. METAMIZOL                          /06276702/ [Concomitant]
     Dosage: UNK
  3. FIDAXOMICIN [Concomitant]
     Active Substance: FIDAXOMICIN
     Dosage: UNK

REACTIONS (3)
  - Clostridium colitis [Recovered/Resolved]
  - Campylobacter gastroenteritis [Recovered/Resolved]
  - Influenza like illness [Recovered/Resolved]

NARRATIVE: CASE EVENT DATE: 20200804
